FAERS Safety Report 8612605-2 (Version None)
Quarter: 2012Q3

REPORT INFORMATION
  Report Type: 
  Country: None (occurrence: None)
  Receive Date: 20120822
  Receipt Date: 20111020
  Transmission Date: 20120928
  Serious: No
  Sender: FDA-Public Use
  Company Number: US-ASTRAZENECA-2011SE63375

PATIENT
  Age: 85 Year
  Sex: Female
  Weight: 51.7 kg

DRUGS (2)
  1. SYMBICORT [Suspect]
     Indication: CHRONIC OBSTRUCTIVE PULMONARY DISEASE
     Dosage: 1 PUFF TWO TIMES A DAY
     Route: 055
     Dates: start: 20111014
  2. HERBAL VITAMINS [Concomitant]

REACTIONS (2)
  - OXYGEN SATURATION DECREASED [None]
  - INCORRECT DOSE ADMINISTERED [None]
